FAERS Safety Report 18459839 (Version 3)
Quarter: 2021Q1

REPORT INFORMATION
  Report Type: Report from Study
  Country: US (occurrence: US)
  Receive Date: 20201104
  Receipt Date: 20210129
  Transmission Date: 20210419
  Serious: Yes (Hospitalization, Other)
  Sender: FDA-Public Use
  Company Number: US-BIOGEN-2020BI00942058

PATIENT
  Age: 69 Year
  Sex: Female

DRUGS (1)
  1. TYSABRI [Suspect]
     Active Substance: NATALIZUMAB
     Indication: MULTIPLE SCLEROSIS
     Route: 065
     Dates: start: 20190213, end: 20200902

REACTIONS (3)
  - Hypersensitivity [Recovered/Resolved]
  - Hallucination [Recovered/Resolved]
  - Breast cancer metastatic [Recovered/Resolved]

NARRATIVE: CASE EVENT DATE: 202007
